FAERS Safety Report 7474012-8 (Version None)
Quarter: 2011Q2

REPORT INFORMATION
  Report Type: 
  Country: None (occurrence: None)
  Receive Date: 20110511
  Receipt Date: 20110428
  Transmission Date: 20111010
  Serious: Yes (Hospitalization, Other)
  Sender: FDA-Public Use
  Company Number: CA-GENENTECH-269410

PATIENT
  Sex: Female
  Weight: 64 kg

DRUGS (1)
  1. XOLAIR [Suspect]
     Indication: ASTHMA
     Dosage: 150 MG, Q4W
     Route: 058
     Dates: start: 20070827

REACTIONS (9)
  - SPINAL NERVE STIMULATOR IMPLANTATION [None]
  - HEADACHE [None]
  - WEIGHT DECREASED [None]
  - CONCUSSION [None]
  - OESOPHAGEAL PAIN [None]
  - CACHEXIA [None]
  - MOVEMENT DISORDER [None]
  - HYPOPHAGIA [None]
  - HEAD INJURY [None]
